FAERS Safety Report 24182020 (Version 9)
Quarter: 2025Q1

REPORT INFORMATION
  Report Type: Report from Study
  Country: US (occurrence: US)
  Receive Date: 20240807
  Receipt Date: 20250311
  Transmission Date: 20250409
  Serious: Yes (Hospitalization, Other)
  Sender: INSMED
  Company Number: US-INSMED, INC.-2024-02634-US

PATIENT
  Sex: Female

DRUGS (3)
  1. ARIKAYCE [Suspect]
     Active Substance: AMIKACIN
     Indication: Mycobacterial infection
     Dosage: 590 MILLIGRAM, QD
     Route: 055
     Dates: start: 202406, end: 2024
  2. ARIKAYCE [Suspect]
     Active Substance: AMIKACIN
     Dosage: 590 MILLIGRAM, QD
     Route: 055
     Dates: start: 2024, end: 202411
  3. ALBUTEROL [Concomitant]
     Active Substance: ALBUTEROL
     Indication: Product used for unknown indication
     Route: 055

REACTIONS (14)
  - Hospitalisation [Unknown]
  - Oxygen saturation decreased [Unknown]
  - Chest tube insertion [Unknown]
  - Catheterisation cardiac [Unknown]
  - Pain [Unknown]
  - Sputum increased [Unknown]
  - Cough [Unknown]
  - Illness [Unknown]
  - Dysphonia [Unknown]
  - Unevaluable event [Unknown]
  - Adverse reaction [Unknown]
  - Dyspnoea [Unknown]
  - Therapy interrupted [Unknown]
  - Product dose omission issue [Unknown]

NARRATIVE: CASE EVENT DATE: 20240101
